FAERS Safety Report 8249587-1 (Version None)
Quarter: 2012Q1

REPORT INFORMATION
  Report Type: 
  Country: None (occurrence: None)
  Receive Date: 20120327
  Receipt Date: 20120319
  Transmission Date: 20120608
  Serious: Yes (Life-Threatening)
  Sender: FDA-Public Use
  Company Number: WAES 1203USA02634

PATIENT
  Age: 46 Year
  Sex: Male

DRUGS (3)
  1. RALTEGRAVIR [Suspect]
     Indication: HIV INFECTION
     Dates: start: 20110429, end: 20120319
  2. LOPINAVIR/RITONAVIR [Suspect]
     Indication: HIV INFECTION
     Dates: start: 20110429, end: 20120319
  3. COARTEM [Concomitant]

REACTIONS (9)
  - JAUNDICE ACHOLURIC [None]
  - ASTHENIA [None]
  - HEPATOMEGALY [None]
  - SEPSIS [None]
  - DYSPNOEA [None]
  - ANAEMIA [None]
  - PYREXIA [None]
  - DIARRHOEA [None]
  - VOMITING [None]
